FAERS Safety Report 17279369 (Version 1)
Quarter: 2020Q1

REPORT INFORMATION
  Report Type: Spontaneous
  Country: ES (occurrence: ES)
  Receive Date: 20200116
  Receipt Date: 20200116
  Transmission Date: 20200409
  Serious: Yes (Other)
  Sender: FDA-Public Use
  Company Number: ES-NOVOPROD-705759

PATIENT
  Age: 79 Year
  Sex: Female

DRUGS (1)
  1. VICTOZA [Suspect]
     Active Substance: LIRAGLUTIDE
     Indication: DIABETES MELLITUS
     Dosage: UNK
     Route: 058
     Dates: start: 20181029, end: 20190221

REACTIONS (3)
  - Pain [Recovered/Resolved]
  - Malaise [Recovered/Resolved]
  - Nausea [Recovered/Resolved]

NARRATIVE: CASE EVENT DATE: 20190221
